FAERS Safety Report 21863688 (Version 1)
Quarter: 2023Q1

REPORT INFORMATION
  Report Type: Spontaneous
  Country: US (occurrence: US)
  Receive Date: 20230116
  Receipt Date: 20230116
  Transmission Date: 20230417
  Serious: Yes (Other)
  Sender: FDA-Public Use
  Company Number: US-drreddys-LIT/USA/23/0159875

PATIENT
  Age: 67 Year
  Sex: Female

DRUGS (2)
  1. LETROZOLE [Suspect]
     Active Substance: LETROZOLE
     Indication: Ovarian granulosa cell tumour
     Route: 048
  2. ANASTROZOLE [Suspect]
     Active Substance: ANASTROZOLE
     Indication: Ovarian granulosa cell tumour
     Route: 048

REACTIONS (4)
  - Ovarian granulosa cell tumour [Recovering/Resolving]
  - Disease recurrence [Recovering/Resolving]
  - Lymphadenopathy [Recovering/Resolving]
  - Drug ineffective for unapproved indication [Unknown]
